FAERS Safety Report 8739372 (Version 8)
Quarter: 2013Q3

REPORT INFORMATION
  Report Type: Spontaneous
  Country: US (occurrence: US)
  Receive Date: 20120823
  Receipt Date: 20130701
  Transmission Date: 20140515
  Serious: Yes (Hospitalization, Disabling, Other)
  Sender: FDA-Public Use
  Company Number: US-009507513-1208USA005962

PATIENT
  Sex: Female
  Weight: 67.21 kg

DRUGS (3)
  1. FOSAMAX [Suspect]
     Indication: OSTEOPOROSIS
     Dosage: 70 MG, QW
     Route: 048
     Dates: start: 20030816
  2. FOSAMAX [Suspect]
     Dosage: 70 MG, QW
     Route: 048
     Dates: start: 20070817
  3. PRILOSEC [Concomitant]
     Dosage: UNK
     Dates: start: 1999

REACTIONS (34)
  - Radius fracture [Unknown]
  - Coronary artery bypass [Unknown]
  - Impaired healing [Unknown]
  - Bursitis [Unknown]
  - Atrial fibrillation [Unknown]
  - Nicotine dependence [Unknown]
  - Osteoarthritis [Unknown]
  - Cerumen impaction [Unknown]
  - Depression [Unknown]
  - Pneumonia [Unknown]
  - Heart valve calcification [Unknown]
  - Fall [Unknown]
  - Arthritis [Unknown]
  - Caffeine consumption [Unknown]
  - Vascular calcification [Unknown]
  - Contusion [Unknown]
  - Painful respiration [Unknown]
  - Thoracic vertebral fracture [Unknown]
  - Rib fracture [Unknown]
  - Contusion [Unknown]
  - Arteriosclerosis [Unknown]
  - Musculoskeletal pain [Unknown]
  - Femur fracture [Not Recovered/Not Resolved]
  - Hip fracture [Unknown]
  - Intramedullary rod insertion [Unknown]
  - Aortic valve replacement [Unknown]
  - Hip fracture [Unknown]
  - Open reduction of fracture [Unknown]
  - Femur fracture [Not Recovered/Not Resolved]
  - Hypoacusis [Unknown]
  - Fall [Unknown]
  - Concussion [Unknown]
  - Osteoporosis [Not Recovered/Not Resolved]
  - Stress fracture [Unknown]
